FAERS Safety Report 5996601-X (Version None)
Quarter: 2008Q4

REPORT INFORMATION
  Report Type: 
  Country: None (occurrence: None)
  Receive Date: 20081204
  Receipt Date: 20081118
  Transmission Date: 20090506
  Serious: Yes (Hospitalization)
  Sender: FDA-Public Use
  Company Number: B05408040B

PATIENT
  Sex: Female
  Weight: 3.3113 kg

DRUGS (5)
  1. BETAMETHASONE [Suspect]
     Dosage: TRANSPLACENTARY
     Route: 064
  2. LANOXIN [Suspect]
     Dosage: TRANSPLACENTARY
     Route: 064
  3. SOTALOL HCL [Suspect]
     Indication: MATERNAL DRUGS AFFECTING FOETUS
     Dosage: TRANSPLACENTARY
     Route: 064
  4. ACTIGALL [Suspect]
     Dosage: TRANSPLACENTARY
  5. VITAMIN K (FORMULATION UNKNOWN) (VITAMIN K) [Suspect]
     Dosage: TRANSPLACENTARY
     Route: 064

REACTIONS (7)
  - BREECH PRESENTATION [None]
  - CAESAREAN SECTION [None]
  - FOETAL HYPOKINESIA [None]
  - HYDROPS FOETALIS [None]
  - MATERNAL DRUGS AFFECTING FOETUS [None]
  - PREMATURE RUPTURE OF MEMBRANES [None]
  - TACHYCARDIA FOETAL [None]
